FAERS Safety Report 8889527 (Version 1)
Quarter: 2012Q4

REPORT INFORMATION
  Report Type: Spontaneous
  Country: US (occurrence: None)
  Receive Date: 20121105
  Receipt Date: 20121105
  Transmission Date: 20130627
  Serious: Yes (Disabling)
  Sender: FDA-Public Use
  Company Number: None

PATIENT
  Sex: Female
  Weight: 104.33 kg

DRUGS (1)
  1. GABAPENTIN 300 MG [Suspect]
     Dates: start: 200702, end: 200712

REACTIONS (2)
  - Amnesia [None]
  - Convulsion [None]
